FAERS Safety Report 8473738-7 (Version None)
Quarter: 2012Q2

REPORT INFORMATION
  Report Type: 
  Country: None (occurrence: None)
  Receive Date: 20120628
  Receipt Date: 20111007
  Transmission Date: 20120825
  Serious: Yes (Death)
  Sender: FDA-Public Use
  Company Number: US-MYLANLABS-2011S1020973

PATIENT
  Age: 41 Year
  Sex: Male

DRUGS (9)
  1. PAROXETINE HCL [Concomitant]
  2. EZETIMIBE [Concomitant]
  3. CLOZAPINE [Suspect]
     Route: 048
  4. LEVOTHYROXINE [Concomitant]
  5. COUMADIN [Concomitant]
  6. CLOZAPINE [Suspect]
     Route: 048
  7. TERAZOSIN HCL [Concomitant]
  8. OMEPRAZOLE [Concomitant]
  9. SIMVASTATIN [Concomitant]

REACTIONS (1)
  - DEATH [None]
